FAERS Safety Report 12701417 (Version 1)
Quarter: 2016Q3

REPORT INFORMATION
  Report Type: Spontaneous
  Country: US (occurrence: None)
  Receive Date: 20160830
  Receipt Date: 20160830
  Transmission Date: 20161109
  Serious: No
  Sender: FDA-Public Use
  Company Number: None

PATIENT
  Age: 71 Year
  Sex: Female
  Weight: 48.08 kg

DRUGS (5)
  1. METROPOL [Concomitant]
  2. ASPIRIN. [Concomitant]
     Active Substance: ASPIRIN
  3. METCLOPRAMIDE [Concomitant]
  4. PANTOPRAZOLE [Concomitant]
     Active Substance: PANTOPRAZOLE SODIUM
  5. GENTAMICIN, 250 MG [Suspect]
     Active Substance: GENTAMICIN
     Indication: KIDNEY INFECTION
     Dosage: INTO A VEIN
     Route: 048
     Dates: start: 20160816, end: 20160823

REACTIONS (3)
  - Ear pain [None]
  - Balance disorder [None]
  - Vision blurred [None]

NARRATIVE: CASE EVENT DATE: 20160829
